FAERS Safety Report 7094612-7 (Version None)
Quarter: 2010Q4

REPORT INFORMATION
  Report Type: 
  Country: None (occurrence: None)
  Receive Date: 20101110
  Receipt Date: 20101103
  Transmission Date: 20110411
  Serious: Yes (Other)
  Sender: FDA-Public Use
  Company Number: GR-PFIZER INC-2010139918

PATIENT
  Sex: Female

DRUGS (2)
  1. XALATAN [Suspect]
     Dosage: UNK
     Route: 047
  2. LATANOPROST [Suspect]

REACTIONS (2)
  - DRUG ADMINISTRATION ERROR [None]
  - INTRAOCULAR PRESSURE INCREASED [None]
